FAERS Safety Report 16760598 (Version 1)
Quarter: 2019Q4

REPORT INFORMATION
  Report Type: Spontaneous
  Country: US (occurrence: US)
  Receive Date: 20190830
  Receipt Date: 20190830
  Transmission Date: 20200122
  Serious: Yes (Disabling)
  Sender: FDA-Public Use
  Company Number: None

PATIENT
  Age: 59 Year
  Sex: Male

DRUGS (1)
  1. MORPHINE SULPHATE [Suspect]
     Active Substance: MORPHINE SULFATE

REACTIONS (2)
  - Patient dissatisfaction with treatment [None]
  - Intentional product use issue [None]

NARRATIVE: CASE EVENT DATE: 20180807
